FAERS Safety Report 5386317-5 (Version None)
Quarter: 2007Q3

REPORT INFORMATION
  Report Type: 
  Country: None (occurrence: None)
  Receive Date: 20070713
  Receipt Date: 20070704
  Transmission Date: 20080115
  Serious: Yes (Hospitalization)
  Sender: FDA-Public Use
  Company Number: SE-BAXTER-2007BH004814

PATIENT
  Sex: Male
  Weight: 61 kg

DRUGS (8)
  1. EXTRANEAL [Suspect]
     Indication: RENAL FAILURE CHRONIC
     Dosage: DOSE UNIT:UNKNOWN
     Route: 033
  2. EXTRANEAL [Suspect]
     Indication: DIABETIC NEPHROPATHY
     Dosage: DOSE UNIT:UNKNOWN
     Route: 033
  3. NUTRINEAL [Suspect]
     Indication: RENAL FAILURE CHRONIC
     Dosage: DOSE UNIT:UNKNOWN
     Route: 033
  4. NUTRINEAL [Suspect]
     Indication: DIABETIC NEPHROPATHY
     Dosage: DOSE UNIT:UNKNOWN
     Route: 033
  5. PHYSIOSOL IN PLASTIC CONTAINER [Suspect]
     Indication: RENAL FAILURE CHRONIC
     Dosage: DOSE UNIT:UNKNOWN
     Route: 033
  6. PHYSIOSOL IN PLASTIC CONTAINER [Suspect]
     Indication: DIABETIC NEPHROPATHY
     Dosage: DOSE UNIT:UNKNOWN
     Route: 033
  7. PHYSIOSOL IN PLASTIC CONTAINER [Suspect]
     Dosage: DOSE UNIT:UNKNOWN
     Route: 033
  8. PHYSIOSOL IN PLASTIC CONTAINER [Suspect]
     Dosage: DOSE UNIT:UNKNOWN
     Route: 033

REACTIONS (2)
  - BODY TEMPERATURE INCREASED [None]
  - PERITONEAL CLOUDY EFFLUENT [None]
